FAERS Safety Report 15546928 (Version 1)
Quarter: 2018Q4

REPORT INFORMATION
  Report Type: Spontaneous
  Country: US (occurrence: US)
  Receive Date: 20181024
  Receipt Date: 20181024
  Transmission Date: 20190205
  Serious: Yes (Other)
  Sender: FDA-Public Use
  Company Number: None

PATIENT
  Age: 57 Year
  Sex: Female
  Weight: 56.25 kg

DRUGS (6)
  1. IRINOTECAN [Concomitant]
     Active Substance: IRINOTECAN
  2. WELLBUTRIN [Concomitant]
     Active Substance: BUPROPION HYDROCHLORIDE
  3. AVASTIN [Concomitant]
     Active Substance: BEVACIZUMAB
  4. CURCUMIN [Concomitant]
     Active Substance: CURCUMIN
  5. PRISTIQ EXTENDED-RELEASE [Suspect]
     Active Substance: DESVENLAFAXINE SUCCINATE
     Indication: DEPRESSION
     Route: 048
     Dates: start: 20101001, end: 20170501
  6. PRISTIQ EXTENDED-RELEASE [Concomitant]
     Active Substance: DESVENLAFAXINE SUCCINATE

REACTIONS (6)
  - Middle insomnia [None]
  - Fall [None]
  - Motor dysfunction [None]
  - Dizziness [None]
  - Muscular weakness [None]
  - Diplopia [None]

NARRATIVE: CASE EVENT DATE: 20170410
